FAERS Safety Report 7536367-5 (Version None)
Quarter: 2011Q2

REPORT INFORMATION
  Report Type: 
  Country: None (occurrence: None)
  Receive Date: 20110609
  Receipt Date: 20110602
  Transmission Date: 20111010
  Serious: Yes (Hospitalization)
  Sender: FDA-Public Use
  Company Number: US-SANOFI-AVENTIS-2011SA035738

PATIENT
  Age: 42 Year
  Sex: Female

DRUGS (1)
  1. ALLEGRA D 24 HOUR [Suspect]
     Route: 048
     Dates: start: 20020101, end: 20110101

REACTIONS (2)
  - PNEUMONIA [None]
  - HYPERGLYCAEMIA [None]
